FAERS Safety Report 10089160 (Version 3)
Quarter: 2015Q1

REPORT INFORMATION
  Report Type: Spontaneous
  Country: US (occurrence: US)
  Receive Date: 20140421
  Receipt Date: 20150330
  Transmission Date: 20150720
  Serious: Yes (Hospitalization, Disabling, Other)
  Sender: FDA-Public Use
  Company Number: US-009507513-1404USA006197

PATIENT
  Sex: Female

DRUGS (6)
  1. FOSAMAX [Suspect]
     Active Substance: ALENDRONATE SODIUM
     Indication: OSTEOPOROSIS
     Dosage: UNK
     Route: 048
     Dates: start: 1997, end: 20060920
  2. CALCIUM (UNSPECIFIED) [Concomitant]
     Active Substance: CALCIUM
     Dosage: 1200 MG, UNK
     Route: 048
     Dates: start: 1997, end: 2011
  3. ASCORBIC ACID. [Concomitant]
     Active Substance: ASCORBIC ACID
     Dosage: 500 IU, UNK
     Route: 048
     Dates: start: 1997, end: 2011
  4. FOSAMAX [Suspect]
     Active Substance: ALENDRONATE SODIUM
     Dosage: 70 MG, QW
     Route: 048
  5. VITAMIN D [Concomitant]
     Active Substance: CHOLECALCIFEROL
     Dosage: 600 MG, UNK
     Route: 048
     Dates: start: 1997, end: 2011
  6. VITAMIN E [Concomitant]
     Active Substance: .ALPHA.-TOCOPHEROL
     Dosage: 400 MG, UNK
     Route: 048
     Dates: start: 1997, end: 2011

REACTIONS (14)
  - Hypoaesthesia [Unknown]
  - Joint crepitation [Unknown]
  - Femur fracture [Recovered/Resolved]
  - Hypoaesthesia [Unknown]
  - Peripheral swelling [Unknown]
  - Rheumatoid arthritis [Unknown]
  - Femur fracture [Recovered/Resolved]
  - Nerve injury [Unknown]
  - Joint effusion [Unknown]
  - Lower limb fracture [Unknown]
  - Open reduction of fracture [Unknown]
  - Bursitis [Unknown]
  - Osteoarthritis [Unknown]
  - Sciatica [Unknown]

NARRATIVE: CASE EVENT DATE: 2005
